FAERS Safety Report 22271636 (Version 2)
Quarter: 2023Q2

REPORT INFORMATION
  Report Type: Report from Study
  Country: US (occurrence: US)
  Receive Date: 20230502
  Receipt Date: 20230504
  Transmission Date: 20230722
  Serious: Yes (Other)
  Sender: FDA-Public Use
  Company Number: US-ABBVIE-4739162

PATIENT
  Age: 36 Year
  Sex: Female

DRUGS (1)
  1. SKYRIZI [Suspect]
     Active Substance: RISANKIZUMAB-RZAA
     Indication: Psoriasis
     Route: 058
     Dates: start: 20230404, end: 20230421

REACTIONS (7)
  - Macular oedema [Recovering/Resolving]
  - Rash [Not Recovered/Not Resolved]
  - Skin ulcer [Unknown]
  - Rash [Unknown]
  - Skin hypertrophy [Unknown]
  - Inflammation [Unknown]
  - Eye disorder [Unknown]

NARRATIVE: CASE EVENT DATE: 20230407
